FAERS Safety Report 16975458 (Version 1)
Quarter: 2019Q4

REPORT INFORMATION
  Report Type: Spontaneous
  Country: US (occurrence: US)
  Receive Date: 20190913
  Receipt Date: 20190913
  Transmission Date: 20200122
  Serious: Yes (Other)
  Sender: FDA-Public Use
  Company Number: None

PATIENT
  Age: 76 Year
  Sex: Male

DRUGS (13)
  1. MULTIVITAMIN [Concomitant]
     Active Substance: VITAMINS
  2. ASPIRIN. [Concomitant]
     Active Substance: ASPIRIN
  3. SPIRONOLACTONE. [Concomitant]
     Active Substance: SPIRONOLACTONE
  4. TORSEMIDE. [Concomitant]
     Active Substance: TORSEMIDE
  5. VITAMIN D3 [Concomitant]
     Active Substance: CHOLECALCIFEROL
  6. PULLVLLCORT 0.5MG/2ML [Concomitant]
  7. ALPHAGAN OPHTHAL DROP [Concomitant]
  8. OPSUMIT [Suspect]
     Active Substance: MACITENTAN
     Indication: PULMONARY HYPERTENSION
     Route: 048
     Dates: start: 201802, end: 201908
  9. SILDENAFIL. [Concomitant]
     Active Substance: SILDENAFIL
  10. NADOLOL. [Concomitant]
     Active Substance: NADOLOL
  11. LEVOTHYROXINE. [Concomitant]
     Active Substance: LEVOTHYROXINE
  12. MVI [Concomitant]
     Active Substance: VITAMINS
  13. OPSUMIT [Concomitant]
     Active Substance: MACITENTAN

REACTIONS (3)
  - Oedema [None]
  - Dyspnoea [None]
  - Therapy cessation [None]

NARRATIVE: CASE EVENT DATE: 20190812
